FAERS Safety Report 14141304 (Version 14)
Quarter: 2018Q3

REPORT INFORMATION
  Report Type: Spontaneous
  Country: DE (occurrence: DE)
  Receive Date: 20171030
  Receipt Date: 20180827
  Transmission Date: 20181010
  Serious: Yes (Hospitalization, Other)
  Sender: FDA-Public Use
  Company Number: DE-AMGEN-DEUSP2017162185

PATIENT
  Age: 58 Year
  Sex: Male
  Weight: 55 kg

DRUGS (18)
  1. VINCRISTINE [Suspect]
     Active Substance: VINCRISTINE
     Indication: B-CELL LYMPHOMA
     Dosage: 3.12 MG, QD (CUMULATIVE DOSE 3 MG)
     Route: 042
     Dates: start: 20171012, end: 20171012
  2. EXEMESTANE. [Suspect]
     Active Substance: EXEMESTANE
     Indication: BREAST CANCER METASTATIC
     Dosage: 25 MG, QD CUMULATIVE DOSE 7250 MG)
     Route: 048
     Dates: start: 20160523
  3. ASPIRIN. [Concomitant]
     Active Substance: ASPIRIN
     Indication: PROPHYLAXIS
     Dosage: 100 MG, QD (1 IN 1 D)
     Route: 048
     Dates: start: 20171010
  4. PEGFILGRASTIM [Suspect]
     Active Substance: PEGFILGRASTIM
     Dosage: 6 MG, QD (1 IN 1 D)
     Route: 058
     Dates: start: 20171015, end: 20171015
  5. MABTHERA [Suspect]
     Active Substance: RITUXIMAB
     Dosage: 15400 MG, UNK
     Route: 042
  6. DOXORUBICINE [Suspect]
     Active Substance: DOXORUBICIN
     Indication: B-CELL LYMPHOMA
     Dosage: 95 MG, QD (1 IN 1 D)
     Route: 042
     Dates: start: 20171012, end: 20171012
  7. PREDNISOLONE. [Suspect]
     Active Substance: PREDNISOLONE
     Dosage: 20 MG, QD (1 IN 1 D)
     Route: 065
     Dates: start: 20170213
  8. PREDNISOLONE. [Suspect]
     Active Substance: PREDNISOLONE
     Dosage: 20 MG, QD ( 1 IN 1 D)
     Route: 048
     Dates: start: 20171113
  9. AFINITOR [Suspect]
     Active Substance: EVEROLIMUS
     Indication: BREAST CANCER METASTATIC
     Dosage: 10 MG, QD (CUMULATIVE DOSE 780MG)
     Route: 048
     Dates: start: 20160523
  10. CYCLOPHOSPHAMIDE. [Suspect]
     Active Substance: CYCLOPHOSPHAMIDE
     Indication: B-CELL LYMPHOMA
     Dosage: 1400 MG, QD (1 IN 1 D)
     Route: 042
     Dates: start: 20171012, end: 20171012
  11. PEGFILGRASTIM [Suspect]
     Active Substance: PEGFILGRASTIM
     Indication: B-CELL LYMPHOMA
     Dosage: 6 MG, QD (1 IN 1 D)
     Route: 058
     Dates: start: 20171012, end: 20171012
  12. PREDNISOLONE. [Suspect]
     Active Substance: PREDNISOLONE
     Indication: B-CELL LYMPHOMA
     Dosage: 500 MG, QD (1 IN 1 D)
     Route: 048
     Dates: start: 20171012, end: 20171012
  13. AFINITOR [Suspect]
     Active Substance: EVEROLIMUS
     Dosage: 10 MG, QD
     Route: 048
     Dates: start: 20160901
  14. SIMVASTATIN. [Concomitant]
     Active Substance: SIMVASTATIN
     Indication: HYPERCHOLESTEROLAEMIA
     Dosage: 20 MG, QD (CUMULATIVE DOSE TO FIRST REACTION 300 MG)
     Route: 048
     Dates: start: 20171010
  15. ACETYLSALICYLSAEURE [Concomitant]
     Active Substance: ASPIRIN
     Indication: PROPHYLAXIS
     Dosage: 100 MG, QD
     Route: 048
     Dates: start: 20171010
  16. TAMSULOSIN [Concomitant]
     Active Substance: TAMSULOSIN
     Indication: BENIGN PROSTATIC HYPERPLASIA
     Dosage: 4 MG, QD (CUMULATIVE DOSE TO FIRST REACTION 60 MG)
     Route: 048
     Dates: start: 20171010
  17. MABTHERA [Suspect]
     Active Substance: RITUXIMAB
     Indication: B-CELL LYMPHOMA
     Dosage: 700 MG, QD (CUMULATIVE DOSE 1 IN 1 D)
     Route: 042
     Dates: start: 20171011, end: 20171011
  18. ZOPICLON [Concomitant]
     Active Substance: ZOPICLONE
     Indication: SLEEP DISORDER THERAPY
     Dosage: 7.5 MG, QD (1 IN 1 D)
     Route: 048
     Dates: start: 20171010

REACTIONS (2)
  - Pneumonia [Recovered/Resolved]
  - Off label use [Unknown]

NARRATIVE: CASE EVENT DATE: 20171012
